FAERS Safety Report 9779295 (Version 1)
Quarter: 2013Q4

REPORT INFORMATION
  Report Type: Spontaneous
  Country: IT (occurrence: IT)
  Receive Date: 20131223
  Receipt Date: 20131223
  Transmission Date: 20140711
  Serious: Yes (Other)
  Sender: FDA-Public Use
  Company Number: IT-TEVA-450906ISR

PATIENT
  Age: 74 Year
  Sex: Male

DRUGS (1)
  1. METFORMINA [Suspect]
     Indication: TYPE 2 DIABETES MELLITUS
     Dosage: 1500 MILLIGRAM DAILY;
     Route: 048
     Dates: start: 20120630, end: 20120730

REACTIONS (1)
  - Dysentery [Recovered/Resolved]
